FAERS Safety Report 10300946 (Version 2)
Quarter: 2014Q3

REPORT INFORMATION
  Report Type: Spontaneous
  Country: US (occurrence: US)
  Receive Date: 20140714
  Receipt Date: 20140828
  Transmission Date: 20150326
  Serious: No
  Sender: FDA-Public Use
  Company Number: US-PFIZER INC-2014193642

PATIENT
  Age: 67 Year
  Sex: Male
  Weight: 69.39 kg

DRUGS (5)
  1. TOPROL XL [Concomitant]
     Active Substance: METOPROLOL SUCCINATE
     Dosage: UNK
  2. CASODEX [Concomitant]
     Active Substance: BICALUTAMIDE
     Indication: BONE DISORDER
     Dosage: UNK
  3. SUTENT [Suspect]
     Active Substance: SUNITINIB MALATE
     Indication: RENAL CANCER
     Dosage: 37.5 MG, 1X/DAY (BY TAKING ONE 25MG AND ONE 12.5MG CAPSULE)
     Route: 048
     Dates: start: 20120415, end: 20140627
  4. SUTENT [Suspect]
     Active Substance: SUNITINIB MALATE
     Dosage: UNK
  5. XGEVA [Suspect]
     Active Substance: DENOSUMAB
     Indication: BONE DISORDER
     Dosage: UNK

REACTIONS (8)
  - Weight decreased [Unknown]
  - Renal cancer [Unknown]
  - Diarrhoea [Unknown]
  - Hypertension [Unknown]
  - Disease progression [Unknown]
  - Renal disorder [Unknown]
  - Constipation [Unknown]
  - Gingival disorder [Unknown]
